FAERS Safety Report 11578549 (Version 1)
Quarter: 2015Q3

REPORT INFORMATION
  Report Type: Spontaneous
  Country: FR (occurrence: FR)
  Receive Date: 20150930
  Receipt Date: 20150930
  Transmission Date: 20151125
  Serious: Yes (Hospitalization)
  Sender: FDA-Public Use
  Company Number: FR-PFIZER INC-2015319974

PATIENT
  Age: 92 Year
  Sex: Female

DRUGS (5)
  1. DAPTOMYCIN. [Suspect]
     Active Substance: DAPTOMYCIN
     Indication: PSOAS ABSCESS
     Dosage: UNK
     Dates: start: 20150812
  2. VANCOMYCIN [Concomitant]
     Active Substance: VANCOMYCIN
     Indication: PSOAS ABSCESS
     Dosage: UNK
     Dates: start: 20150806, end: 20150810
  3. ZYVOXID [Suspect]
     Active Substance: LINEZOLID
     Indication: PNEUMONIA ASPIRATION
     Dosage: UNK
     Route: 048
     Dates: start: 20150816
  4. AZACTAM [Suspect]
     Active Substance: AZTREONAM
     Indication: PNEUMONIA ASPIRATION
     Dosage: UNK
     Dates: start: 20150816, end: 20150819
  5. GENTAMICIN. [Suspect]
     Active Substance: GENTAMICIN
     Indication: PSOAS ABSCESS
     Dosage: UNK
     Dates: start: 20150806, end: 20150817

REACTIONS (3)
  - Cell death [Unknown]
  - Renal failure [Unknown]
  - Cholestasis [Unknown]

NARRATIVE: CASE EVENT DATE: 20150819
